FAERS Safety Report 6900221-X (Version None)
Quarter: 2010Q3

REPORT INFORMATION
  Report Type: 
  Country: None (occurrence: None)
  Receive Date: 20100803
  Receipt Date: 20100723
  Transmission Date: 20110219
  Serious: Yes (Hospitalization)
  Sender: FDA-Public Use
  Company Number: JP-AMGEN-KDC428234

PATIENT
  Age: 59 Year
  Sex: Male
  Weight: 70 kg

DRUGS (10)
  1. VECTIBIX [Suspect]
     Indication: COLORECTAL CANCER
     Route: 041
     Dates: start: 20100622
  2. IRINOTECAN HYDROCHLORIDE [Suspect]
     Indication: COLORECTAL CANCER
     Route: 041
     Dates: start: 20100622
  3. DALACIN-T [Concomitant]
     Route: 062
  4. MYSER [Concomitant]
     Route: 062
  5. RINDERON-V [Concomitant]
     Route: 062
  6. TAMSULOSIN HCL [Concomitant]
     Route: 048
  7. VENCOLL [Concomitant]
     Route: 048
  8. MIYA-BM [Concomitant]
     Route: 048
  9. PROTECADIN [Concomitant]
     Route: 048
  10. TSUMURA DAIKENTYUTO [Concomitant]
     Route: 048

REACTIONS (5)
  - CONJUNCTIVITIS [None]
  - DERMATITIS ACNEIFORM [None]
  - ILEUS [None]
  - LACRIMATION INCREASED [None]
  - PERIORBITAL OEDEMA [None]
